FAERS Safety Report 8492631-7 (Version None)
Quarter: 2012Q3

REPORT INFORMATION
  Report Type: 
  Country: None (occurrence: None)
  Receive Date: 20120706
  Receipt Date: 20120629
  Transmission Date: 20120928
  Serious: Yes (Life-Threatening, Hospitalization)
  Sender: FDA-Public Use
  Company Number: CL-CELGENEUS-034-50794-12070054

PATIENT
  Sex: Female

DRUGS (8)
  1. ALLOPURINOL [Concomitant]
     Dosage: 300 MILLIGRAM
     Route: 065
  2. ALBUMINA HUMANA [Concomitant]
     Route: 065
  3. GRANISETRON [Concomitant]
     Dosage: 3 MILLIGRAM
     Route: 065
  4. OMEPRAZOLE [Concomitant]
     Dosage: 20 MILLIGRAM
     Route: 065
  5. ACIDO FOLICO [Concomitant]
     Dosage: 5 MILLIGRAM
     Route: 065
  6. METOPROLOL [Concomitant]
     Dosage: 50 MILLIGRAM
     Route: 065
  7. FUROSEMIDE [Concomitant]
     Dosage: 20 MILLIGRAM
     Route: 065
  8. VIDAZA [Suspect]
     Dosage: 130 MILLIGRAM
     Route: 041
     Dates: start: 20120603, end: 20120607

REACTIONS (1)
  - CARDIAC DISORDER [None]
